FAERS Safety Report 5678112-4 (Version None)
Quarter: 2008Q1

REPORT INFORMATION
  Report Type: 
  Country: None (occurrence: None)
  Receive Date: 20080324
  Receipt Date: 20080324
  Transmission Date: 20080703
  Serious: Yes (Life-Threatening, Other)
  Sender: FDA-Public Use
  Company Number: None

PATIENT
  Age: 27 Year
  Sex: Female
  Weight: 74.8435 kg

DRUGS (1)
  1. BUDEPRION XL 300 MG TEVA [Suspect]
     Indication: DEPRESSION
     Dosage: 1 PILL DAILY PO
     Route: 048

REACTIONS (7)
  - DEPRESSION [None]
  - DISEASE RECURRENCE [None]
  - DYSPEPSIA [None]
  - INTENTIONAL SELF-INJURY [None]
  - PHARMACEUTICAL PRODUCT COMPLAINT [None]
  - SUICIDAL IDEATION [None]
  - THERAPEUTIC RESPONSE UNEXPECTED WITH DRUG SUBSTITUTION [None]
